FAERS Safety Report 20754988 (Version 1)
Quarter: 2022Q2

REPORT INFORMATION
  Report Type: Spontaneous
  Country: US (occurrence: US)
  Receive Date: 20220427
  Receipt Date: 20220427
  Transmission Date: 20220720
  Serious: Yes (Hospitalization, Other)
  Sender: FDA-Public Use
  Company Number: US-LOTUS-2022-LOTUS-048730

PATIENT
  Age: 75 Year
  Sex: Male

DRUGS (5)
  1. METHOTREXATE [Suspect]
     Active Substance: METHOTREXATE
     Indication: Scleroderma
  2. PREDNISONE [Suspect]
     Active Substance: PREDNISONE
     Indication: Scleroderma
  3. CAPTOPRIL [Concomitant]
     Active Substance: CAPTOPRIL
     Indication: Scleroderma renal crisis
  4. MYCOPHENOLATE MOFETIL [Concomitant]
     Active Substance: MYCOPHENOLATE MOFETIL
     Indication: Renal cell carcinoma
  5. HUMAN IMMUNOGLOBULIN G [Concomitant]
     Active Substance: HUMAN IMMUNOGLOBULIN G
     Indication: Renal cell carcinoma
     Route: 042

REACTIONS (1)
  - Scleroderma renal crisis [Unknown]
